FAERS Safety Report 7530616-5 (Version None)
Quarter: 2011Q2

REPORT INFORMATION
  Report Type: 
  Country: None (occurrence: None)
  Receive Date: 20110607
  Receipt Date: 20110606
  Transmission Date: 20111010
  Serious: Yes (Hospitalization)
  Sender: FDA-Public Use
  Company Number: GB-AMGEN-GBRSP2010000339

PATIENT
  Sex: Female

DRUGS (6)
  1. RUBELLA VACCINE                    /00129201/ [Concomitant]
  2. CALCICHEW [Concomitant]
     Dosage: 6 UNK, UNK
     Route: 048
  3. CINACALCET HYDROCHLORIDE [Suspect]
     Indication: HYPERPARATHYROIDISM SECONDARY
     Dosage: 30 MG, UNK
     Route: 048
     Dates: start: 20091101, end: 20100930
  4. ACETAMINOPHEN [Concomitant]
     Indication: HYPERPARATHYROIDISM SECONDARY
     Route: 048
  5. RITUXIMAB [Concomitant]
     Dosage: UNK UNK, Q2WK
     Route: 042
  6. PREDNISOLONE [Concomitant]
     Dosage: UNK MG, UNK
     Route: 048

REACTIONS (4)
  - LATEX ALLERGY [None]
  - FUNGAL INFECTION [None]
  - RASH [None]
  - PITYRIASIS ROSEA [None]
